FAERS Safety Report 13346841 (Version 1)
Quarter: 2017Q1

REPORT INFORMATION
  Report Type: Spontaneous
  Country: DK (occurrence: DK)
  Receive Date: 20170317
  Receipt Date: 20170317
  Transmission Date: 20170428
  Serious: Yes (Hospitalization)
  Sender: FDA-Public Use
  Company Number: DK-PFIZER INC-2017114490

PATIENT
  Age: 91 Year
  Sex: Female

DRUGS (4)
  1. AMLODIPIN TEVA [Suspect]
     Active Substance: AMLODIPINE BESYLATE
     Indication: HYPERTENSION
     Dosage: 5 MG, 1X/DAY
     Route: 048
  2. CORODIL COMP [Suspect]
     Active Substance: ENALAPRIL MALEATE\HYDROCHLOROTHIAZIDE
     Indication: HYPERTENSION
     Dosage: 20/12.5 MG 1 DF, 1X/DAY
     Route: 048
  3. DETRUSITOL [Suspect]
     Active Substance: TOLTERODINE TARTRATE
     Indication: POLLAKIURIA
     Dosage: 4 MG, 1X/DAY
     Route: 048
  4. KODEIN DAK [Suspect]
     Active Substance: CODEINE PHOSPHATE
     Indication: PAIN
     Dosage: 25 MG, 2X/DAY
     Route: 048

REACTIONS (3)
  - Dizziness [Unknown]
  - Femur fracture [Unknown]
  - Fall [Unknown]
